FAERS Safety Report 6194283-8 (Version None)
Quarter: 2009Q2

REPORT INFORMATION
  Report Type: 
  Country: None (occurrence: None)
  Receive Date: 20090514
  Receipt Date: 20090501
  Transmission Date: 20091009
  Serious: Yes (Hospitalization, Other)
  Sender: FDA-Public Use
  Company Number: 2009040082

PATIENT
  Age: 71 Year
  Sex: Male

DRUGS (17)
  1. TORSEMIDE [Suspect]
     Dates: start: 20080723
  2. SAXAGLIPTIN (SAXAGLIPTIN) [Suspect]
     Indication: TYPE 2 DIABETES MELLITUS
     Dosage: (2.5 MG),ORAL
     Route: 048
     Dates: start: 20070730, end: 20090214
  3. LISINOPRIL [Suspect]
     Dates: start: 20090110
  4. FOSINOPRIL SODIUM [Suspect]
  5. NEBIVOLOL HCL [Suspect]
  6. DOXAZOSIN MESYLATE [Suspect]
  7. CARMEN [Suspect]
  8. INSUMAN COMB 25 (BIPHASIC) [Concomitant]
  9. ISOPHANE INSULIN (INSULIN) [Concomitant]
  10. ASPIRIN [Concomitant]
  11. ALLOPURINOL [Concomitant]
  12. AMOXICILLIN W/CLAVULANIC ACID (AMOXICILLIN, CLAVULANIC ACID) [Concomitant]
  13. XIPAMIDE (XIPAMIDE) [Concomitant]
  14. BISOPROLOL FUMARATE [Concomitant]
  15. METOPROLOL TARTRATE [Concomitant]
  16. TRAMADOL HCL [Concomitant]
  17. NOVAMINSULFON (DIPYRONE) [Concomitant]

REACTIONS (13)
  - ABDOMINAL PAIN UPPER [None]
  - BLOOD CREATINE INCREASED [None]
  - BLOOD PRESSURE DIASTOLIC DECREASED [None]
  - BLOOD UREA INCREASED [None]
  - BUNDLE BRANCH BLOCK LEFT [None]
  - CARDIAC FAILURE [None]
  - DIZZINESS [None]
  - LOSS OF CONSCIOUSNESS [None]
  - ORTHOSTATIC HYPOTENSION [None]
  - PNEUMONIA [None]
  - PULMONARY CONGESTION [None]
  - PULMONARY OEDEMA [None]
  - QRS AXIS ABNORMAL [None]
